FAERS Safety Report 9819633 (Version 2)
Quarter: 2014Q1

REPORT INFORMATION
  Report Type: Spontaneous
  Country: US (occurrence: None)
  Receive Date: 20140113
  Receipt Date: 20140127
  Transmission Date: 20141002
  Serious: Yes (Hospitalization)
  Sender: FDA-Public Use
  Company Number: 152369

PATIENT
  Age: 53 Year
  Sex: Male

DRUGS (3)
  1. LEUCOVORIN CALCIUM FOR INJ. 50MG - BEDFORD LABS, INC. [Suspect]
     Indication: MUSCLE ATROPHY
     Route: 042
     Dates: start: 20131106
  2. LEUCOVORIN CALCIUM FOR INJ. 50MG - BEDFORD LABS, INC. [Suspect]
     Indication: MUSCULAR WEAKNESS
     Route: 042
     Dates: start: 20131106
  3. LEUCOVORIN CALCIUM FOR INJ. 50MG - BEDFORD LABS, INC. [Suspect]
     Indication: PAIN
     Route: 042
     Dates: start: 20131106

REACTIONS (1)
  - Neutropenic sepsis [None]
